FAERS Safety Report 12319063 (Version 1)
Quarter: 2016Q2

REPORT INFORMATION
  Report Type: Spontaneous
  Country: JP (occurrence: JP)
  Receive Date: 20160429
  Receipt Date: 20160429
  Transmission Date: 20160815
  Serious: Yes (Death, Other)
  Sender: FDA-Public Use
  Company Number: PHJP2016JP005825

PATIENT
  Sex: Male

DRUGS (2)
  1. VOTRIENT [Suspect]
     Active Substance: PAZOPANIB HYDROCHLORIDE
     Dosage: 400 MG, BID
     Route: 048
     Dates: start: 20160122, end: 20160129
  2. VOTRIENT [Suspect]
     Active Substance: PAZOPANIB HYDROCHLORIDE
     Indication: METASTATIC RENAL CELL CARCINOMA
     Dosage: 200 MG, BID
     Route: 048
     Dates: start: 20160115, end: 20160121

REACTIONS (8)
  - Pneumonia bacterial [Fatal]
  - Malignant neoplasm progression [Unknown]
  - Pyrexia [Unknown]
  - Lung infection [Fatal]
  - Dyspnoea [Unknown]
  - Disseminated intravascular coagulation [Unknown]
  - Pleural effusion [Unknown]
  - Pneumothorax [Not Recovered/Not Resolved]

NARRATIVE: CASE EVENT DATE: 20160129
